FAERS Safety Report 5695512-7 (Version None)
Quarter: 2008Q2

REPORT INFORMATION
  Report Type: 
  Country: None (occurrence: None)
  Receive Date: 20080407
  Receipt Date: 20080401
  Transmission Date: 20081010
  Serious: Yes (Other)
  Sender: FDA-Public Use
  Company Number: US-BAYER-200812178NA

PATIENT
  Age: 32 Year
  Sex: Female
  Weight: 73 kg

DRUGS (2)
  1. MIRENA [Suspect]
     Indication: CONTRACEPTION
     Route: 015
     Dates: start: 20071219, end: 20080111
  2. ALCOHOL (ETHANOL) [Concomitant]

REACTIONS (9)
  - ABDOMINAL PAIN [None]
  - FATIGUE [None]
  - IUCD COMPLICATION [None]
  - METRORRHAGIA [None]
  - MUSCULOSKELETAL PAIN [None]
  - NAUSEA [None]
  - PAIN [None]
  - PROCEDURAL PAIN [None]
  - UTERINE RUPTURE [None]
